FAERS Safety Report 5073859-5 (Version None)
Quarter: 2006Q3

REPORT INFORMATION
  Report Type: 
  Country: None (occurrence: None)
  Receive Date: 20060808
  Receipt Date: 20060803
  Transmission Date: 20061208
  Serious: Yes (Other)
  Sender: FDA-Public Use
  Company Number: BR-GLAXOSMITHKLINE-A0615402A

PATIENT
  Age: 42 Year
  Sex: Female
  Weight: 74 kg

DRUGS (6)
  1. NIQUITIN 21MG [Suspect]
     Indication: SMOKING CESSATION THERAPY
     Dosage: 1PAT PER DAY
     Route: 062
     Dates: start: 20060722, end: 20060725
  2. HIDROCLOROTIAZIDA [Concomitant]
     Dosage: 100MG PER DAY
  3. CAPTOPRIL [Concomitant]
     Dosage: 100MG PER DAY
  4. GLIBENCLAMIDA [Concomitant]
     Dosage: 10MG PER DAY
  5. DICLOFENACO SODICO [Concomitant]
     Dosage: 3TAB PER DAY
  6. CYANOCOBALAMIN + THIAMINE HYDROCHLORIDE + PYRIDOXINE HYDROCHLORIDE [Concomitant]
     Dosage: 1TAB AT NIGHT

REACTIONS (6)
  - ABNORMAL DREAMS [None]
  - DIARRHOEA [None]
  - HALLUCINATION [None]
  - INTENTIONAL DRUG MISUSE [None]
  - NAUSEA [None]
  - VOMITING [None]
